FAERS Safety Report 15130412 (Version 2)
Quarter: 2019Q1

REPORT INFORMATION
  Report Type: Spontaneous
  Country: IE (occurrence: IE)
  Receive Date: 20180711
  Receipt Date: 20190118
  Transmission Date: 20190417
  Serious: Yes (Hospitalization)
  Sender: FDA-Public Use
  Company Number: IE-SAMSUNG BIOEPIS-SB-2018-08946

PATIENT
  Age: 71 Year
  Sex: Male

DRUGS (1)
  1. INFLIXIMAB [Suspect]
     Active Substance: INFLIXIMAB
     Indication: COLITIS ULCERATIVE
     Dosage: DOSAGE FORM: LYOPHILIZED POWDER?DOSE UNKNOWN
     Route: 042

REACTIONS (10)
  - Pneumonia [Recovered/Resolved]
  - Atrial fibrillation [Recovered/Resolved]
  - Post procedural complication [Recovered/Resolved]
  - Pleural effusion [Recovered/Resolved]
  - Emphysema [Recovered/Resolved]
  - Pneumothorax [Recovered/Resolved]
  - Gastric volvulus [Unknown]
  - Hiatus hernia [Recovered/Resolved]
  - Haemoptysis [Recovered/Resolved]
  - Pulmonary embolism [Recovered/Resolved]
